FAERS Safety Report 4873931-6 (Version None)
Quarter: 2006Q1

REPORT INFORMATION
  Report Type: 
  Country: None (occurrence: None)
  Receive Date: 20060106
  Receipt Date: 20051228
  Transmission Date: 20060701
  Serious: Yes (Other)
  Sender: FDA-Public Use
  Company Number: US-JNJFOC-20051200117

PATIENT
  Sex: Female
  Weight: 92.99 kg

DRUGS (2)
  1. REMICADE [Suspect]
     Indication: PSORIASIS
     Route: 042
  2. REMICADE [Suspect]
     Indication: PSORIATIC ARTHROPATHY
     Route: 042

REACTIONS (9)
  - AGEUSIA [None]
  - DIZZINESS [None]
  - DRY EYE [None]
  - DYSPHAGIA [None]
  - HEADACHE [None]
  - LACRIMATION DECREASED [None]
  - RASH PRURITIC [None]
  - VISION BLURRED [None]
  - VISUAL DISTURBANCE [None]
